FAERS Safety Report 6182081-0 (Version None)
Quarter: 2009Q2

REPORT INFORMATION
  Report Type: 
  Country: None (occurrence: None)
  Receive Date: 20090507
  Receipt Date: 20090427
  Transmission Date: 20091009
  Serious: Yes (Other)
  Sender: FDA-Public Use
  Company Number: US-PFIZER INC-2009204392

PATIENT
  Sex: Female

DRUGS (3)
  1. DEPO-PROVERA [Suspect]
     Indication: HORMONE THERAPY
     Dates: start: 20090331
  2. SEROQUEL [Concomitant]
     Dosage: UNK
  3. EFFEXOR XR [Concomitant]
     Dosage: 150 MG, 1X/DAY

REACTIONS (8)
  - ASTHENIA [None]
  - CARPAL TUNNEL SYNDROME [None]
  - CEREBROVASCULAR ACCIDENT [None]
  - HOT FLUSH [None]
  - MENORRHAGIA [None]
  - PALLOR [None]
  - SYNCOPE [None]
  - VISUAL IMPAIRMENT [None]
